FAERS Safety Report 9917149 (Version 1)
Quarter: 2014Q1

REPORT INFORMATION
  Report Type: Spontaneous
  Country: US (occurrence: US)
  Receive Date: 20140221
  Receipt Date: 20140221
  Transmission Date: 20141002
  Serious: Yes (Other)
  Sender: FDA-Public Use
  Company Number: US-ACTAVIS-2014-02790

PATIENT
  Age: 79 Year
  Sex: Female
  Weight: 54 kg

DRUGS (5)
  1. ALPRAZOLAM (AELLC) [Suspect]
     Indication: INSOMNIA
     Dosage: 0.5 DF, BID
     Route: 065
  2. METOPROLOL [Concomitant]
     Indication: HYPERTENSION
     Dosage: 1 DF, DAILY
     Route: 048
  3. PRILOSEC                           /00661201/ [Concomitant]
     Indication: GASTROOESOPHAGEAL REFLUX DISEASE
     Dosage: 1 DF, DAILY
     Route: 048
  4. MULTIVITAMIN                       /00097801/ [Concomitant]
     Indication: SUPPLEMENTATION THERAPY
     Dosage: 1 DF, DAILY
     Route: 065
  5. CALCIUM + VITAMIN D                /01483701/ [Concomitant]
     Indication: OSTEOPOROSIS
     Dosage: 1 DF, DAILY
     Route: 048

REACTIONS (4)
  - Blood pressure increased [Recovered/Resolved]
  - Restlessness [Recovered/Resolved]
  - Agitation [Recovered/Resolved]
  - Visual impairment [Recovered/Resolved]
